FAERS Safety Report 19790783 (Version 5)
Quarter: 2022Q3

REPORT INFORMATION
  Report Type: Report from Study
  Country: US (occurrence: US)
  Receive Date: 20210906
  Receipt Date: 20220901
  Transmission Date: 20221027
  Serious: Yes (Other)
  Sender: FDA-Public Use
  Company Number: US-ABBVIE-21K-163-4050093-00

PATIENT
  Sex: Female
  Weight: 108.96 kg

DRUGS (11)
  1. HUMIRA [Suspect]
     Active Substance: ADALIMUMAB
     Indication: Rheumatoid arthritis
     Dosage: CITRATE FREE
     Route: 058
     Dates: start: 20180122
  2. HUMIRA [Suspect]
     Active Substance: ADALIMUMAB
     Route: 058
     Dates: start: 20180606
  3. DULOXETINE [Suspect]
     Active Substance: DULOXETINE
     Indication: Product used for unknown indication
     Route: 065
  4. METFORMIN [Concomitant]
     Active Substance: METFORMIN HYDROCHLORIDE
     Indication: Diabetes mellitus
  5. CITALOPRAM [Concomitant]
     Active Substance: CITALOPRAM HYDROBROMIDE
     Indication: Anxiety
  6. CITALOPRAM [Concomitant]
     Active Substance: CITALOPRAM HYDROBROMIDE
     Indication: Depression
  7. CITALOPRAM [Concomitant]
     Active Substance: CITALOPRAM HYDROBROMIDE
     Indication: Dementia
  8. ROSUVASTATIN [Concomitant]
     Active Substance: ROSUVASTATIN
     Indication: Dementia
  9. LORATADINE [Concomitant]
     Active Substance: LORATADINE
     Indication: Hypersensitivity
  10. OXYBUTYNIN [Concomitant]
     Active Substance: OXYBUTYNIN
     Indication: Bladder disorder
  11. OXYBUTYNIN [Concomitant]
     Active Substance: OXYBUTYNIN
     Indication: Incontinence

REACTIONS (60)
  - Dermal cyst [Recovering/Resolving]
  - Blindness unilateral [Unknown]
  - Cataract [Not Recovered/Not Resolved]
  - Eye complication associated with device [Not Recovered/Not Resolved]
  - Eye haemorrhage [Not Recovered/Not Resolved]
  - Neovascular age-related macular degeneration [Not Recovered/Not Resolved]
  - Macular degeneration [Unknown]
  - Cerebrovascular accident [Unknown]
  - Osteoporosis [Not Recovered/Not Resolved]
  - Gastric ulcer [Recovering/Resolving]
  - Bursitis [Recovering/Resolving]
  - Osteoarthritis [Not Recovered/Not Resolved]
  - Oxygen saturation decreased [Not Recovered/Not Resolved]
  - Parkinson^s disease [Unknown]
  - Skin disorder [Recovering/Resolving]
  - Skin fissures [Unknown]
  - Scab [Unknown]
  - Skin ulcer [Unknown]
  - Hypermetropia [Unknown]
  - Pruritus [Recovered/Resolved]
  - Muscle tightness [Not Recovered/Not Resolved]
  - Skin burning sensation [Recovered/Resolved]
  - Aspiration [Not Recovered/Not Resolved]
  - White blood cell count increased [Not Recovered/Not Resolved]
  - Blister [Unknown]
  - Ear pruritus [Unknown]
  - Visual impairment [Not Recovered/Not Resolved]
  - Photosensitivity reaction [Recovered/Resolved]
  - Fall [Unknown]
  - Fall [Recovered/Resolved]
  - Foot fracture [Recovered/Resolved]
  - Abdominal pain upper [Unknown]
  - Muscle spasms [Unknown]
  - Neck pain [Not Recovered/Not Resolved]
  - Herpes zoster [Recovered/Resolved]
  - Abdominal pain upper [Recovering/Resolving]
  - Dyspnoea [Not Recovered/Not Resolved]
  - Asthma [Not Recovered/Not Resolved]
  - COVID-19 pneumonia [Recovered/Resolved]
  - COVID-19 pneumonia [Recovered/Resolved]
  - Arthralgia [Not Recovered/Not Resolved]
  - Arthralgia [Recovered/Resolved]
  - Asthma [Recovered/Resolved]
  - COVID-19 pneumonia [Recovered/Resolved]
  - Alopecia [Unknown]
  - Pain of skin [Unknown]
  - Muscle spasms [Unknown]
  - Pustular psoriasis [Unknown]
  - Diabetes mellitus [Not Recovered/Not Resolved]
  - Asthma [Not Recovered/Not Resolved]
  - Rheumatoid arthritis [Not Recovered/Not Resolved]
  - Ear pain [Unknown]
  - Lower limb fracture [Unknown]
  - Bursitis [Recovering/Resolving]
  - Pain in extremity [Not Recovered/Not Resolved]
  - Back pain [Not Recovered/Not Resolved]
  - Diarrhoea [Unknown]
  - Vomiting [Unknown]
  - Pain [Unknown]
  - Nausea [Unknown]

NARRATIVE: CASE EVENT DATE: 20180101
